FAERS Safety Report 14588467 (Version 3)
Quarter: 2018Q2

REPORT INFORMATION
  Report Type: Spontaneous
  Country: US (occurrence: US)
  Receive Date: 20180301
  Receipt Date: 20180522
  Transmission Date: 20180711
  Serious: Yes (Hospitalization, Other)
  Sender: FDA-Public Use
  Company Number: US-UPSHER-SMITH LABORATORIES, LLC-2018USL00080

PATIENT
  Age: 63 Year
  Sex: Male

DRUGS (11)
  1. ASA [Concomitant]
     Active Substance: ASPIRIN
     Dosage: UNK
     Dates: start: 1999
  2. PANTOPRAZOLE [Concomitant]
     Active Substance: PANTOPRAZOLE
     Dosage: UNK
     Dates: start: 20140901, end: 20171214
  3. PEMBROLIZUMAB. [Suspect]
     Active Substance: PEMBROLIZUMAB
     Indication: PANCREATIC CARCINOMA METASTATIC
     Dosage: 200 MG, EVERY 3 WEEKS
     Route: 042
     Dates: start: 20171208, end: 20180103
  4. TAMSULOSIN [Concomitant]
     Active Substance: TAMSULOSIN
  5. VITAMIN B COMPLEX [Concomitant]
     Active Substance: CYANOCOBALAMIN\DEXPANTHENOL\NIACINAMIDE\PYRIDOXINE HYDROCHLORIDE\RIBOFLAVIN 5^-PHOSPHATE SODIUM\THIAMINE HYDROCHLORIDE\VITAMIN B COMPLEX
     Dosage: UNK
     Dates: start: 20161130
  6. CISPLATIN. [Suspect]
     Active Substance: CISPLATIN
     Indication: PANCREATIC CARCINOMA METASTATIC
     Dosage: 100 MG/M2, EVERY 3 WEEKS
     Route: 042
     Dates: start: 20171208, end: 20180103
  7. 5-FLUOROURACIL [Suspect]
     Active Substance: FLUOROURACIL
     Indication: PANCREATIC CARCINOMA METASTATIC
     Dosage: 100 MG/M2, 1X/DAY
     Dates: start: 20171208, end: 20171216
  8. CREON [Concomitant]
     Active Substance: PANCRELIPASE AMYLASE\PANCRELIPASE LIPASE\PANCRELIPASE PROTEASE
     Dosage: UNK
     Dates: start: 20161130
  9. POTASSIUM CHLORIDE. [Suspect]
     Active Substance: POTASSIUM CHLORIDE
     Dosage: UNK
     Route: 048
     Dates: end: 20171219
  10. EPACADOSTAT (INCB024360) [Suspect]
     Active Substance: EPACADOSTAT
     Indication: PANCREATIC CARCINOMA METASTATIC
     Dosage: 200 MG, 2X/DAY
     Route: 048
     Dates: start: 20171208, end: 20180103
  11. ASCORBIC ACID. [Concomitant]
     Active Substance: ASCORBIC ACID
     Dosage: UNK
     Dates: start: 20161130

REACTIONS (10)
  - Dehydration [Unknown]
  - Oesophagitis [Recovered/Resolved]
  - Head injury [Unknown]
  - Asthenia [Unknown]
  - Syncope [Unknown]
  - Dysphagia [Recovered/Resolved]
  - Retching [Unknown]
  - Loss of consciousness [Recovered/Resolved]
  - Small intestinal stenosis [Unknown]
  - Vomiting [Unknown]

NARRATIVE: CASE EVENT DATE: 20171214
